FAERS Safety Report 8570627-4 (Version None)
Quarter: 2012Q3

REPORT INFORMATION
  Report Type: 
  Country: None (occurrence: None)
  Receive Date: 20120804
  Receipt Date: 20120725
  Transmission Date: 20120928
  Serious: No
  Sender: FDA-Public Use
  Company Number: US-009507513-1207USA011779

PATIENT

DRUGS (1)
  1. SAPHRIS [Suspect]
     Indication: SCHIZOPHRENIA

REACTIONS (3)
  - MUSCLE RIGIDITY [None]
  - MUSCLE CONTRACTIONS INVOLUNTARY [None]
  - MUSCLE SPASMS [None]
